FAERS Safety Report 8691018 (Version 2)
Quarter: 2013Q4

REPORT INFORMATION
  Report Type: Spontaneous
  Country: US (occurrence: US)
  Receive Date: 20120730
  Receipt Date: 20131031
  Transmission Date: 20140711
  Serious: No
  Sender: FDA-Public Use
  Company Number: US-JNJFOC-20120609980

PATIENT
  Sex: Male
  Weight: 86.18 kg

DRUGS (9)
  1. DURAGESIC 75 [Suspect]
     Indication: PAIN
     Route: 062
     Dates: start: 200312
  2. DURAGESIC [Suspect]
     Indication: PAIN
     Route: 062
  3. PROVIGIL [Concomitant]
     Indication: SLEEP DISORDER
     Route: 048
     Dates: start: 2004
  4. SKELAXIN [Concomitant]
     Indication: MUSCLE RELAXANT THERAPY
     Route: 048
  5. CYMBALTA [Concomitant]
     Route: 048
     Dates: start: 2004
  6. DILTIAZEM [Concomitant]
     Indication: BLOOD PRESSURE
     Route: 048
     Dates: start: 2004
  7. RANITIDINE [Concomitant]
     Indication: DYSPEPSIA
     Route: 048
     Dates: start: 2004
  8. PRAVASTATIN [Concomitant]
     Indication: BLOOD CHOLESTEROL
     Route: 048
     Dates: start: 2004
  9. CLONIDINE [Concomitant]
     Indication: BLOOD PRESSURE
     Route: 048
     Dates: start: 2004

REACTIONS (6)
  - Wrong technique in drug usage process [Unknown]
  - Hyperhidrosis [Not Recovered/Not Resolved]
  - Product quality issue [Not Recovered/Not Resolved]
  - Pain [Not Recovered/Not Resolved]
  - Cold sweat [Not Recovered/Not Resolved]
  - Feeling abnormal [Not Recovered/Not Resolved]
